FAERS Safety Report 9742664 (Version 3)
Quarter: 2015Q3

REPORT INFORMATION
  Report Type: Spontaneous
  Country: US (occurrence: US)
  Receive Date: 20131210
  Receipt Date: 20150804
  Transmission Date: 20151125
  Serious: Yes (Hospitalization)
  Sender: FDA-Public Use
  Company Number: US-GILEAD-2009-0024781

PATIENT
  Age: 18 Year
  Sex: Female
  Weight: 51.44 kg

DRUGS (20)
  1. CIALIS [Concomitant]
     Active Substance: TADALAFIL
  2. DIGOXIN. [Concomitant]
     Active Substance: DIGOXIN
  3. LETAIRIS [Suspect]
     Active Substance: AMBRISENTAN
     Indication: PULMONARY ARTERIAL HYPERTENSION
     Route: 048
     Dates: start: 20070809
  4. OXYGEN. [Concomitant]
     Active Substance: OXYGEN
  5. LAMICTAL [Concomitant]
     Active Substance: LAMOTRIGINE
  6. COLACE [Concomitant]
     Active Substance: DOCUSATE SODIUM
  7. FUROSEMIDE. [Concomitant]
     Active Substance: FUROSEMIDE
  8. PULMICORT TURBUHALER [Concomitant]
     Active Substance: BUDESONIDE
  9. MIRALAX [Concomitant]
     Active Substance: POLYETHYLENE GLYCOL 3350
  10. FERROUS SULFATE [Concomitant]
     Active Substance: FERROUS SULFATE\FERROUS SULFATE, DRIED
  11. WARFARIN SODIUM. [Concomitant]
     Active Substance: WARFARIN SODIUM
  12. LITHIUM CARBONATE. [Concomitant]
     Active Substance: LITHIUM CARBONATE
  13. CONCERTA [Concomitant]
     Active Substance: METHYLPHENIDATE HYDROCHLORIDE
  14. METOCLOPRAMIDE. [Concomitant]
     Active Substance: METOCLOPRAMIDE
  15. REMODULIN [Concomitant]
     Active Substance: TREPROSTINIL
  16. SODIUM CHLORIDE. [Concomitant]
     Active Substance: SODIUM CHLORIDE
  17. FOLIC ACID. [Concomitant]
     Active Substance: FOLIC ACID
  18. ADCIRCA [Concomitant]
     Active Substance: TADALAFIL
  19. LORAZEPAM. [Concomitant]
     Active Substance: LORAZEPAM
  20. BISCODYL [Concomitant]
     Active Substance: BISACODYL

REACTIONS (1)
  - Abdominal pain [Unknown]
